FAERS Safety Report 24002529 (Version 1)
Quarter: 2024Q2

REPORT INFORMATION
  Report Type: Spontaneous
  Country: CN (occurrence: CN)
  Receive Date: 20240623
  Receipt Date: 20240623
  Transmission Date: 20240716
  Serious: Yes (Hospitalization)
  Sender: FDA-Public Use
  Company Number: CN-BEIGENE-BGN-2024-009074

PATIENT

DRUGS (4)
  1. TISLELIZUMAB [Suspect]
     Active Substance: TISLELIZUMAB
     Indication: Lung neoplasm malignant
     Dosage: 200 MILLIGRAM
     Route: 041
     Dates: start: 20240221
  2. OXALIPLATIN [Suspect]
     Active Substance: OXALIPLATIN
     Indication: Lung neoplasm malignant
     Dosage: 150 MILLIGRAM
     Route: 041
     Dates: start: 20240221
  3. GIMERACIL\OTERACIL\TEGAFUR [Suspect]
     Active Substance: GIMERACIL\OTERACIL POTASSIUM\TEGAFUR
     Indication: Lung neoplasm malignant
     Dosage: AM60MG, PM40MG, D1-14
     Route: 048
     Dates: start: 20240221
  4. CATEQUENTINIB DIHYDROCHLORIDE [Suspect]
     Active Substance: CATEQUENTINIB DIHYDROCHLORIDE
     Indication: Lung neoplasm malignant
     Dosage: 10 MILLIGRAM, QD
     Route: 048
     Dates: start: 20240221

REACTIONS (1)
  - Myelosuppression [Recovering/Resolving]

NARRATIVE: CASE EVENT DATE: 20240307
